FAERS Safety Report 21480613 (Version 1)
Quarter: 2022Q4

REPORT INFORMATION
  Report Type: Spontaneous
  Country: US (occurrence: None)
  Receive Date: 20221019
  Receipt Date: 20221019
  Transmission Date: 20230113
  Serious: Yes (Other)
  Sender: FDA-Public Use
  Company Number: None

PATIENT
  Age: 58 Year
  Sex: Female
  Weight: 85.5 kg

DRUGS (21)
  1. OZEMPIC [Suspect]
     Active Substance: SEMAGLUTIDE
     Indication: Type 2 diabetes mellitus
     Dates: start: 20221015, end: 20221015
  2. SYNTHROID [Concomitant]
     Active Substance: LEVOTHYROXINE SODIUM
  3. BUPROPION [Concomitant]
     Active Substance: BUPROPION
  4. VYVANSE [Concomitant]
     Active Substance: LISDEXAMFETAMINE DIMESYLATE
  5. LISINOPRIL [Concomitant]
     Active Substance: LISINOPRIL
  6. METOPROLOL [Concomitant]
     Active Substance: METOPROLOL
  7. CHLORTHALIDONE [Concomitant]
     Active Substance: CHLORTHALIDONE
  8. ZYPREXA [Concomitant]
     Active Substance: OLANZAPINE
  9. AMLODIPINE [Concomitant]
     Active Substance: AMLODIPINE BESYLATE
  10. LATUDA [Concomitant]
     Active Substance: LURASIDONE HYDROCHLORIDE
  11. TIZANIDINE [Concomitant]
     Active Substance: TIZANIDINE
  12. SINGULAIR [Concomitant]
     Active Substance: MONTELUKAST SODIUM
  13. FLONASE [Concomitant]
     Active Substance: FLUTICASONE PROPIONATE
  14. BIOTIN [Concomitant]
     Active Substance: BIOTIN
  15. VITAMIN D3 [Concomitant]
     Active Substance: CHOLECALCIFEROL
  16. VITAMIN B12 [Concomitant]
     Active Substance: CYANOCOBALAMIN
  17. Women^s Multivitamins [Concomitant]
  18. TUMS [Concomitant]
     Active Substance: CALCIUM CARBONATE
  19. GAS-X [Concomitant]
     Active Substance: DIMETHICONE
  20. CIMETIDINE ACID REDUCER [Concomitant]
     Active Substance: CIMETIDINE
  21. BENADRYL [Concomitant]
     Active Substance: DIPHENHYDRAMINE HYDROCHLORIDE

REACTIONS (2)
  - Nausea [None]
  - Vomiting [None]

NARRATIVE: CASE EVENT DATE: 20221018
